FAERS Safety Report 25416855 (Version 1)
Quarter: 2025Q2

REPORT INFORMATION
  Report Type: Spontaneous
  Country: JP (occurrence: JP)
  Receive Date: 20250610
  Receipt Date: 20250610
  Transmission Date: 20250717
  Serious: Yes (Death, Hospitalization, Other)
  Sender: MACLEODS
  Company Number: JP-MACLEODS PHARMA-MAC2025053407

PATIENT

DRUGS (1)
  1. ZONISAMIDE [Suspect]
     Active Substance: ZONISAMIDE
     Indication: Thalamic microhaemorrhage
     Route: 065

REACTIONS (12)
  - Respiratory failure [Fatal]
  - Aspiration [Fatal]
  - Pneumonia [Fatal]
  - Graft versus host disease [Unknown]
  - Enterocolitis [Unknown]
  - Cytomegalovirus enterocolitis [Unknown]
  - Shock [Unknown]
  - Cholecystitis [Unknown]
  - Drug reaction with eosinophilia and systemic symptoms [Unknown]
  - Hepatic enzyme increased [Unknown]
  - Hypogammaglobulinaemia [Unknown]
  - Malnutrition [Unknown]
